FAERS Safety Report 8204347-2 (Version None)
Quarter: 2012Q1

REPORT INFORMATION
  Report Type: 
  Country: None (occurrence: None)
  Receive Date: 20120227
  Receipt Date: 20120106
  Transmission Date: 20120608
  Serious: No
  Sender: FDA-Public Use
  Company Number: 342651

PATIENT
  Age: 58 Year
  Sex: Male

DRUGS (2)
  1. VICTOZA [Suspect]
     Indication: TYPE 2 DIABETES MELLITUS
     Dosage: SUBCUTANEOUS
     Route: 058
  2. LANTUS [Suspect]
     Indication: TYPE 2 DIABETES MELLITUS
     Dosage: 39 U

REACTIONS (6)
  - BLOOD GLUCOSE FLUCTUATION [None]
  - DIARRHOEA [None]
  - DYSPEPSIA [None]
  - VOMITING [None]
  - NAUSEA [None]
  - WEIGHT DECREASED [None]
